FAERS Safety Report 4625099-9 (Version None)
Quarter: 2005Q2

REPORT INFORMATION
  Report Type: 
  Country: None (occurrence: None)
  Receive Date: 20050325
  Receipt Date: 20050121
  Transmission Date: 20051028
  Serious: No
  Sender: FDA-Public Use
  Company Number: USA050189027

PATIENT
  Age: 75 Year
  Sex: Female
  Weight: 52 kg

DRUGS (5)
  1. FORTEO [Suspect]
     Indication: OSTEOPOROSIS
     Dosage: 20 UG/1 DAY
     Dates: start: 20050101
  2. PROPOXYPHENE NAPSYLATE-. [Suspect]
     Indication: PAIN
     Dates: start: 20040725, end: 20050101
  3. NADOLOL [Concomitant]
  4. TOPROL-XL [Concomitant]
  5. PERCOCET [Concomitant]

REACTIONS (11)
  - ABDOMINAL DISCOMFORT [None]
  - ALLERGIC SINUSITIS [None]
  - ASTHENIA [None]
  - HEART RATE INCREASED [None]
  - HEART RATE IRREGULAR [None]
  - INJECTION SITE ERYTHEMA [None]
  - INJECTION SITE SWELLING [None]
  - INSOMNIA [None]
  - STOMACH DISCOMFORT [None]
  - TENSION [None]
  - TREMOR [None]
